FAERS Safety Report 6044768-X (Version None)
Quarter: 2009Q1

REPORT INFORMATION
  Report Type: 
  Country: None (occurrence: None)
  Receive Date: 20090120
  Receipt Date: 20090113
  Transmission Date: 20090719
  Serious: No
  Sender: FDA-Public Use
  Company Number: US-B.I. PHARMACEUTICALS,INC./RIDGEFIELD-2008-BP-18872BP

PATIENT
  Sex: Female

DRUGS (4)
  1. SPIRIVA [Suspect]
     Indication: EMPHYSEMA
     Dosage: 18MCG
     Route: 055
     Dates: start: 20081126, end: 20081213
  2. SYMBICORT [Concomitant]
  3. DUONEB [Concomitant]
  4. PRILOSEC [Concomitant]

REACTIONS (1)
  - URTICARIA [None]
